FAERS Safety Report 5212193-7 (Version None)
Quarter: 2006Q4

REPORT INFORMATION
  Report Type: 
  Country: None (occurrence: None)
  Receive Date: 20061120
  Receipt Date: 20051021
  Transmission Date: 20070319
  Serious: Yes (Other)
  Sender: FDA-Public Use
  Company Number: US-2005-020514

PATIENT
  Age: 55 Year
  Sex: Female
  Weight: 102 kg

DRUGS (1)
  1. ULTRAVIST (PHARMACY BULK) [Suspect]
     Indication: ARTERIOGRAM CORONARY
     Dosage: 120 ML, 1 DOSE, INTRAVENOUS
     Route: 042
     Dates: start: 20050929, end: 20050929

REACTIONS (7)
  - ALLERGY TO CHEMICALS [None]
  - DYSPNOEA [None]
  - MALAISE [None]
  - NAUSEA [None]
  - RASH [None]
  - SWELLING FACE [None]
  - URTICARIA [None]
